FAERS Safety Report 25701352 (Version 1)
Quarter: 2025Q3

REPORT INFORMATION
  Report Type: Spontaneous
  Country: PR (occurrence: PR)
  Receive Date: 20250819
  Receipt Date: 20250819
  Transmission Date: 20251020
  Serious: Yes (Death)
  Sender: ANI
  Company Number: PR-ANIPHARMA-2025-PR-000064

PATIENT
  Age: 90 Year
  Sex: Male
  Weight: 84.37 kg

DRUGS (11)
  1. CORTICOTROPIN [Suspect]
     Active Substance: CORTICOTROPIN
     Indication: Gout
     Route: 058
     Dates: start: 20250612
  2. ASPIRIN [Concomitant]
     Active Substance: ASPIRIN
     Route: 048
  3. AMLODIPINE BESYLATE [Concomitant]
     Active Substance: AMLODIPINE BESYLATE
     Route: 048
  4. PLAVIX [Concomitant]
     Active Substance: CLOPIDOGREL BISULFATE
     Route: 048
  5. LOSARTAN POTASSIUM [Concomitant]
     Active Substance: LOSARTAN POTASSIUM
     Route: 048
  6. LEVOTHYROXINE SODIUM [Concomitant]
     Active Substance: LEVOTHYROXINE SODIUM
     Route: 048
  7. LASIX [Concomitant]
     Active Substance: FUROSEMIDE
     Route: 048
  8. FERROUS SULFATE [Concomitant]
     Active Substance: FERROUS SULFATE
     Route: 048
  9. FAMOTIDINE [Concomitant]
     Active Substance: FAMOTIDINE
     Route: 048
  10. CARVEDILOL [Concomitant]
     Active Substance: CARVEDILOL
     Route: 048
  11. ATORVASTATIN CALCIUM [Concomitant]
     Active Substance: ATORVASTATIN CALCIUM
     Route: 048

REACTIONS (2)
  - Death [Fatal]
  - Contraindicated product administered [Recovered/Resolved]

NARRATIVE: CASE EVENT DATE: 20250712
